FAERS Safety Report 4427851-1 (Version None)
Quarter: 2004Q3

REPORT INFORMATION
  Report Type: 
  Country: None (occurrence: None)
  Receive Date: 20040812
  Receipt Date: 20040803
  Transmission Date: 20050211
  Serious: No
  Sender: FDA-Public Use
  Company Number: 2004PK01335

PATIENT
  Age: 44 Year
  Sex: Female

DRUGS (2)
  1. NOLVADEX [Suspect]
     Indication: BREAST CANCER
     Dosage: 20 MG DAILY PO
     Route: 048
  2. ZOLADEX [Suspect]
     Indication: BREAST CANCER
     Dosage: 3.6 MG Q4WK SQ
     Route: 058

REACTIONS (1)
  - ABDOMINAL DISCOMFORT [None]
